FAERS Safety Report 7588611-6 (Version None)
Quarter: 2011Q3

REPORT INFORMATION
  Report Type: 
  Country: None (occurrence: None)
  Receive Date: 20110705
  Receipt Date: 20110610
  Transmission Date: 20111222
  Serious: Yes (Other)
  Sender: FDA-Public Use
  Company Number: US-JNJFOC-20110605969

PATIENT
  Sex: Female
  Weight: 52.62 kg

DRUGS (1)
  1. PARAFON FORTE [Suspect]
     Indication: POST-TRAUMATIC NECK SYNDROME
     Route: 048

REACTIONS (2)
  - MYOCARDIAL INFARCTION [None]
  - BACK PAIN [None]
